FAERS Safety Report 5373442-8 (Version None)
Quarter: 2007Q2

REPORT INFORMATION
  Report Type: 
  Country: None (occurrence: None)
  Receive Date: 20070626
  Receipt Date: 20070626
  Transmission Date: 20071010
  Serious: No
  Sender: FDA-Public Use
  Company Number: None

PATIENT
  Age: 57 Year
  Sex: Male
  Weight: 83.0083 kg

DRUGS (1)
  1. CIPRO [Suspect]
     Indication: EPIDIDYMITIS
     Dosage: 500MG TWICE DAILY PO
     Route: 048
     Dates: start: 20070520, end: 20070601

REACTIONS (2)
  - DEAFNESS [None]
  - TINNITUS [None]
